FAERS Safety Report 7730773-1 (Version None)
Quarter: 2011Q3

REPORT INFORMATION
  Report Type: 
  Country: None (occurrence: None)
  Receive Date: 20110906
  Receipt Date: 20110831
  Transmission Date: 20111222
  Serious: Yes (Hospitalization, Other)
  Sender: FDA-Public Use
  Company Number: SE-BRISTOL-MYERS SQUIBB COMPANY-15878796

PATIENT
  Age: 60 Year
  Sex: Male

DRUGS (16)
  1. DALTEPARIN SODIUM [Suspect]
     Dosage: 1 DOSAGE FORM = 1500 UNITS
     Dates: start: 20110711
  2. CILAXORAL [Suspect]
     Dates: start: 20110712, end: 20110725
  3. OMEPRAZOLE [Concomitant]
     Dates: start: 20110716
  4. NOVORAPID [Suspect]
     Indication: DIABETES MELLITUS
     Dates: start: 20110711, end: 20110719
  5. ASPIRIN [Suspect]
     Dosage: 1DF={100MG
     Dates: end: 20110722
  6. FUROSEMIDE [Concomitant]
     Dates: start: 20110711
  7. CLOPIDOGREL BISULFATE [Suspect]
  8. OXYCONTIN [Concomitant]
     Dates: start: 20110711
  9. IMPORTAL [Concomitant]
     Dates: start: 20110726
  10. CILAXORAL [Concomitant]
     Dates: start: 20110712, end: 20110725
  11. BLINDED: SAXAGLIPTIN [Suspect]
     Indication: TYPE 2 DIABETES MELLITUS
     Dosage: INTERRUPTED ON 11JUL2011
     Dates: start: 20110414
  12. INSULATARD NPH HUMAN [Suspect]
     Indication: DIABETES MELLITUS
     Dates: start: 20110718
  13. PLACEBO [Suspect]
     Indication: TYPE 2 DIABETES MELLITUS
     Dosage: INTERRUPTED ON 11JUL2011
     Dates: start: 20110414
  14. LACTULOSE [Suspect]
     Dates: start: 20110720, end: 20110725
  15. METFORMIN HCL [Suspect]
     Indication: TYPE 2 DIABETES MELLITUS
     Dates: end: 20110611
  16. SPIRONOLACTONE [Concomitant]
     Dates: start: 20110713

REACTIONS (7)
  - INGUINAL HERNIA [None]
  - PORTAL VEIN THROMBOSIS [None]
  - HAEMATURIA [None]
  - CONSTIPATION [None]
  - DEHYDRATION [None]
  - ASCITES [None]
  - PANCREATITIS ACUTE [None]
